FAERS Safety Report 20153684 (Version 2)
Quarter: 2021Q4

REPORT INFORMATION
  Report Type: Spontaneous
  Country: CH (occurrence: CH)
  Receive Date: 20211207
  Receipt Date: 20211214
  Transmission Date: 20220303
  Serious: Yes (Other)
  Sender: FDA-Public Use
  Company Number: CH-SA-SAC20211201001411

PATIENT

DRUGS (1)
  1. LIBTAYO [Suspect]
     Active Substance: CEMIPLIMAB-RWLC
     Indication: Product used for unknown indication
     Dosage: UNK

REACTIONS (5)
  - Sturge-Weber syndrome [Unknown]
  - Squamous cell carcinoma [Unknown]
  - Disease progression [Unknown]
  - Pemphigoid [Unknown]
  - Hypercalcaemia [Unknown]
